FAERS Safety Report 9133556 (Version 2)
Quarter: 2013Q1

REPORT INFORMATION
  Report Type: Spontaneous
  Country: US (occurrence: US)
  Receive Date: 20130301
  Receipt Date: 20130319
  Transmission Date: 20140127
  Serious: Yes (Hospitalization)
  Sender: FDA-Public Use
  Company Number: US-GILEAD-2013-0069799

PATIENT
  Age: 65 Year
  Sex: Male

DRUGS (12)
  1. LETAIRIS [Suspect]
     Indication: PULMONARY ARTERIAL HYPERTENSION
     Dosage: 5 MG, QD
     Route: 048
     Dates: start: 20130114
  2. ADCIRCA [Concomitant]
  3. HYDROCHLOROTHIAZIDE [Concomitant]
  4. LASIX                              /00032601/ [Concomitant]
  5. GLUCOPHAGE [Concomitant]
  6. MINOXIDIL [Concomitant]
  7. METOPROLOL [Concomitant]
  8. COZAAR [Concomitant]
  9. FINASTERIDE [Concomitant]
  10. LIPITOR [Concomitant]
  11. DILTIAZEM [Concomitant]
  12. CLONIDINE [Concomitant]

REACTIONS (1)
  - Renal failure [Not Recovered/Not Resolved]
